FAERS Safety Report 17221450 (Version 1)
Quarter: 2020Q1

REPORT INFORMATION
  Report Type: Spontaneous
  Country: US (occurrence: US)
  Receive Date: 20200101
  Receipt Date: 20200101
  Transmission Date: 20200409
  Serious: No
  Sender: FDA-Public Use
  Company Number: US-CELGENEUS-USA-20191209704

PATIENT
  Sex: Female

DRUGS (7)
  1. OTEZLA [Suspect]
     Active Substance: APREMILAST
     Dosage: 40 MILLIGRAM
     Route: 048
     Dates: start: 2019
  2. OTEZLA [Suspect]
     Active Substance: APREMILAST
     Dosage: 60 MILLIGRAM
     Route: 048
     Dates: start: 2019
  3. OTEZLA [Suspect]
     Active Substance: APREMILAST
     Indication: PRODUCT USED FOR UNKNOWN INDICATION
     Dosage: TITRATION PACK 10/20/30 MG
     Route: 048
     Dates: start: 20191126
  4. OTEZLA [Suspect]
     Active Substance: APREMILAST
     Dosage: 10 MILLIGRAM
     Route: 048
     Dates: start: 2019
  5. OTEZLA [Suspect]
     Active Substance: APREMILAST
     Dosage: 30 MILLIGRAM
     Route: 048
     Dates: start: 2019
  6. OTEZLA [Suspect]
     Active Substance: APREMILAST
     Dosage: 50 MILLIGRAM
     Route: 048
     Dates: start: 2019
  7. OTEZLA [Suspect]
     Active Substance: APREMILAST
     Dosage: 20 MILLIGRAM
     Route: 048
     Dates: start: 2019

REACTIONS (1)
  - Respiratory tract infection [Unknown]

NARRATIVE: CASE EVENT DATE: 2019
